FAERS Safety Report 16258051 (Version 1)
Quarter: 2019Q2

REPORT INFORMATION
  Report Type: Spontaneous
  Country: TR (occurrence: TR)
  Receive Date: 20190430
  Receipt Date: 20190430
  Transmission Date: 20190711
  Serious: Yes (Hospitalization)
  Sender: FDA-Public Use
  Company Number: PHHY2019TR098533

PATIENT
  Age: 72 Year
  Sex: Female

DRUGS (1)
  1. TEGRETOL [Suspect]
     Active Substance: CARBAMAZEPINE
     Indication: EPILEPSY
     Dosage: 400 MG, QD
     Route: 048
     Dates: start: 2001

REACTIONS (8)
  - Drug ineffective [Unknown]
  - Fall [Unknown]
  - Tooth fracture [Unknown]
  - Facial bones fracture [Unknown]
  - Foot fracture [Unknown]
  - Gait disturbance [Unknown]
  - Dyskinesia [Unknown]
  - Asthenia [Unknown]
